FAERS Safety Report 18574938 (Version 2)
Quarter: 2020Q4

REPORT INFORMATION
  Report Type: Report from Study
  Country: IT (occurrence: IT)
  Receive Date: 20201203
  Receipt Date: 20201207
  Transmission Date: 20210114
  Serious: Yes (Hospitalization)
  Sender: FDA-Public Use
  Company Number: IT-PFIZER INC-2020474151

PATIENT
  Age: 90 Year
  Sex: Female

DRUGS (7)
  1. ZOLOFT [Suspect]
     Active Substance: SERTRALINE HYDROCHLORIDE
     Dosage: 50 MG, DAILY
     Dates: start: 20200101, end: 20201027
  2. LARGACTIL [CHLORPROMAZINE HYDROCHLORIDE] [Suspect]
     Active Substance: CHLORPROMAZINE HYDROCHLORIDE
     Dosage: 25 MG, DAILY
     Dates: start: 20200101, end: 20201027
  3. ASCRIPTIN [Suspect]
     Active Substance: ASPIRIN
     Dosage: 150 MG, DAILY
     Dates: start: 20200101, end: 20201027
  4. LASIX [Suspect]
     Active Substance: FUROSEMIDE
     Dosage: 50 MG, DAILY
     Dates: start: 20200101, end: 20201027
  5. TALOFEN [Suspect]
     Active Substance: PROMAZINE HYDROCHLORIDE
     Dosage: UNK
     Dates: start: 20200101, end: 20201027
  6. NITRODERM [Concomitant]
     Active Substance: NITROGLYCERIN
     Dosage: UNK
  7. MOVICOL [Concomitant]
     Active Substance: POLYETHYLENE GLYCOL 3350\POTASSIUM CHLORIDE\SODIUM BICARBONATE\SODIUM CHLORIDE
     Dosage: UNK

REACTIONS (2)
  - Faecaloma [Not Recovered/Not Resolved]
  - Intestinal obstruction [Not Recovered/Not Resolved]

NARRATIVE: CASE EVENT DATE: 20201027
